FAERS Safety Report 8984833 (Version 3)
Quarter: 2013Q1

REPORT INFORMATION
  Report Type: Spontaneous
  Country: AU (occurrence: AU)
  Receive Date: 20121226
  Receipt Date: 20130118
  Transmission Date: 20140127
  Serious: Yes (Death)
  Sender: FDA-Public Use
  Company Number: AU-B.I. PHARMACEUTICALS,INC./RIDGEFIELD-2012-AU-02026AU

PATIENT
  Age: 81 Year
  Sex: Male
  Weight: 78 kg

DRUGS (6)
  1. PRADAXA [Suspect]
     Indication: ATRIAL FIBRILLATION
     Dosage: 220 MG
     Dates: start: 20110630
  2. DIGOXIN [Concomitant]
     Dosage: 62.5 MCG
     Dates: end: 20121127
  3. NOTEN [Concomitant]
     Dosage: 50 MG
     Dates: end: 20121127
  4. SOMAC [Concomitant]
     Dosage: 40 MG
     Dates: end: 20121127
  5. LIPITOR [Concomitant]
     Dosage: 10 MG
     Dates: end: 20121127
  6. ZYLOPRIM [Concomitant]
     Dosage: 300 MG
     Dates: end: 20121127

REACTIONS (1)
  - Haemorrhage intracranial [Fatal]
